FAERS Safety Report 9003175 (Version 1)
Quarter: 2013Q1

REPORT INFORMATION
  Report Type: Spontaneous
  Country: US (occurrence: US)
  Receive Date: 20130108
  Receipt Date: 20130108
  Transmission Date: 20140127
  Serious: Yes (Hospitalization)
  Sender: FDA-Public Use
  Company Number: US-009507513-1301USA001546

PATIENT
  Age: 4 Year
  Sex: Male

DRUGS (6)
  1. SINGULAIR [Suspect]
  2. MOTILIUM [Suspect]
     Indication: GROWTH RETARDATION
  3. PULMICORT [Suspect]
     Indication: LUNG DISORDER
  4. ATROVENT [Suspect]
  5. LOPRIL [Suspect]
  6. FORLAX [Suspect]

REACTIONS (2)
  - Thrombocytopenia [Unknown]
  - Lung disorder [Unknown]
